FAERS Safety Report 6776036-2 (Version None)
Quarter: 2010Q2

REPORT INFORMATION
  Report Type: 
  Country: None (occurrence: None)
  Receive Date: 20100617
  Receipt Date: 20100610
  Transmission Date: 20101027
  Serious: Yes (Hospitalization, Other)
  Sender: FDA-Public Use
  Company Number: US-MERCK-0802USA02801

PATIENT
  Age: 54 Year
  Sex: Female

DRUGS (9)
  1. FOSAMAX [Suspect]
     Indication: OSTEOPOROSIS
     Route: 048
     Dates: start: 19960401
  2. FOSAMAX [Suspect]
     Route: 048
     Dates: end: 20100409
  3. ZETIA [Concomitant]
     Route: 048
  4. IMITREX [Concomitant]
     Indication: HEADACHE
     Route: 065
  5. CITRACAL CAPLETS + D [Concomitant]
     Route: 065
  6. TAMOXIFEN CITRATE [Concomitant]
     Indication: BREAST CANCER
     Route: 065
     Dates: start: 19970101, end: 20020101
  7. TAMOXIFEN CITRATE [Concomitant]
     Indication: PROPHYLAXIS
     Route: 065
     Dates: start: 19970101, end: 20020101
  8. SIMVASTATIN [Concomitant]
     Route: 048
  9. CORTICOSTEROIDS (UNSPECIFIED) [Concomitant]
     Indication: HYPERSENSITIVITY
     Route: 065

REACTIONS (12)
  - ANAEMIA [None]
  - ANKLE FRACTURE [None]
  - CREPITATIONS [None]
  - FALL [None]
  - FEMUR FRACTURE [None]
  - FRACTURE NONUNION [None]
  - HAEMORRHAGE [None]
  - IMPAIRED HEALING [None]
  - MUSCULAR WEAKNESS [None]
  - MUSCULOSKELETAL PAIN [None]
  - OVARIAN DISORDER [None]
  - URINARY TRACT INFECTION [None]
